FAERS Safety Report 6398014-8 (Version None)
Quarter: 2009Q4

REPORT INFORMATION
  Report Type: 
  Country: None (occurrence: None)
  Receive Date: 20091013
  Receipt Date: 20091005
  Transmission Date: 20100525
  Serious: Yes (Hospitalization, Other)
  Sender: FDA-Public Use
  Company Number: AT-ABBOTT-09P-009-0568850-00

PATIENT
  Sex: Female
  Weight: 95 kg

DRUGS (15)
  1. HUMIRA [Suspect]
     Indication: RHEUMATOID ARTHRITIS
     Dates: start: 20081024, end: 20081024
  2. HUMIRA [Suspect]
     Dates: start: 20081107, end: 20081107
  3. HUMIRA [Suspect]
     Dates: start: 20081121, end: 20081121
  4. HUMIRA [Suspect]
     Dates: start: 20081205, end: 20081205
  5. HUMIRA [Suspect]
     Dates: start: 20081219, end: 20081219
  6. HUMIRA [Suspect]
     Dates: start: 20090102, end: 20090102
  7. HUMIRA [Suspect]
     Dates: start: 20090116, end: 20090116
  8. HUMIRA [Suspect]
     Dates: start: 20090220, end: 20090220
  9. HUMIRA [Suspect]
     Dates: start: 20090306, end: 20090306
  10. HUMIRA [Suspect]
     Dates: start: 20090320, end: 20090320
  11. HUMIRA [Suspect]
     Dates: start: 20090403, end: 20090403
  12. APREDNISLON [Concomitant]
     Indication: DRUG USE FOR UNKNOWN INDICATION
  13. AERIUS [Concomitant]
     Indication: DRUG USE FOR UNKNOWN INDICATION
     Dosage: ONCE DAILY
  14. PANTOPRAZOLE [Concomitant]
     Indication: DRUG USE FOR UNKNOWN INDICATION
     Dosage: DAILY
  15. MEXALEN [Concomitant]
     Indication: PAIN

REACTIONS (1)
  - MENINGIOMA [None]
